FAERS Safety Report 10642528 (Version 1)
Quarter: 2014Q4

REPORT INFORMATION
  Report Type: Spontaneous
  Country: US (occurrence: None)
  Receive Date: 20141208
  Receipt Date: 20141208
  Transmission Date: 20150529
  Serious: Yes (Hospitalization, Disabling, Other)
  Sender: FDA-Public Use
  Company Number: None

PATIENT
  Age: 50 Year
  Sex: Female
  Weight: 78.47 kg

DRUGS (2)
  1. LYRICA [Suspect]
     Active Substance: PREGABALIN
     Indication: BACK PAIN
     Dosage: 1, AT BEDTIME, TAKEN BY MOUTH.
     Route: 048
  2. LYRICA [Suspect]
     Active Substance: PREGABALIN
     Indication: PAIN IN EXTREMITY
     Dosage: 1, AT BEDTIME, TAKEN BY MOUTH.
     Route: 048

REACTIONS (2)
  - Generalised tonic-clonic seizure [None]
  - Epilepsy [None]

NARRATIVE: CASE EVENT DATE: 20141130
